FAERS Safety Report 9732858 (Version 2)
Quarter: 2013Q4

REPORT INFORMATION
  Report Type: Spontaneous
  Country: US (occurrence: US)
  Receive Date: 20131204
  Receipt Date: 20131204
  Transmission Date: 20140711
  Serious: No
  Sender: FDA-Public Use
  Company Number: US-GILEAD-2009-0021336

PATIENT
  Age: 69 Year
  Sex: Male
  Weight: 71.21 kg

DRUGS (6)
  1. LETAIRIS [Suspect]
     Indication: PULMONARY ARTERIAL HYPERTENSION
     Route: 048
     Dates: start: 20090326
  2. BUMEX [Concomitant]
     Indication: OEDEMA
     Dates: start: 20090330
  3. LASIX [Concomitant]
     Indication: OEDEMA
     Dates: end: 20090330
  4. ASA [Concomitant]
  5. SIMVASTATIN [Concomitant]
  6. METOLAZONE [Concomitant]

REACTIONS (1)
  - Local swelling [Recovering/Resolving]
